FAERS Safety Report 13549377 (Version 3)
Quarter: 2018Q1

REPORT INFORMATION
  Report Type: Spontaneous
  Country: US (occurrence: US)
  Receive Date: 20170516
  Receipt Date: 20180116
  Transmission Date: 20180508
  Serious: No
  Sender: FDA-Public Use
  Company Number: US-PFIZER INC-2017214981

PATIENT
  Age: 59 Year
  Sex: Female
  Weight: 80.27 kg

DRUGS (2)
  1. LYRICA [Suspect]
     Active Substance: PREGABALIN
     Indication: FIBROMYALGIA
     Dosage: 300 MG, 2X/DAY
     Route: 048
  2. LYRICA [Suspect]
     Active Substance: PREGABALIN
     Dosage: 1 DF, 1X/DAY (ONE CAPSULE IN THE MORNING)

REACTIONS (5)
  - Pain [Recovered/Resolved]
  - Influenza like illness [Recovered/Resolved]
  - Prescribed overdose [Unknown]
  - Intentional product misuse [Unknown]
  - Hypoaesthesia [Recovered/Resolved]
